FAERS Safety Report 24202541 (Version 2)
Quarter: 2024Q3

REPORT INFORMATION
  Report Type: Spontaneous
  Country: EG (occurrence: EG)
  Receive Date: 20240813
  Receipt Date: 20240816
  Transmission Date: 20241017
  Serious: Yes (Other)
  Sender: JOHNSON AND JOHNSON
  Company Number: EG-JNJFOC-20240815628

PATIENT
  Age: 34 Year
  Sex: Male
  Weight: 60 kg

DRUGS (4)
  1. INFLIXIMAB [Suspect]
     Active Substance: INFLIXIMAB
     Indication: Crohn^s disease
     Dosage: 100 MG 3 VIALS, STOPPED TAKING REMICADE FROM 2014 TO 2016
     Route: 041
  2. INFLIXIMAB [Suspect]
     Active Substance: INFLIXIMAB
     Dosage: TREATMENT RESTARTED DATE : //2023, 100 MG 3 VIALS
     Route: 041
     Dates: start: 201503, end: 202403
  3. IMURAN [Concomitant]
     Active Substance: AZATHIOPRINE
  4. PENTASA [Concomitant]
     Active Substance: MESALAMINE

REACTIONS (6)
  - Ankylosing spondylitis [Unknown]
  - Crohn^s disease [Not Recovered/Not Resolved]
  - Fistula [Not Recovered/Not Resolved]
  - Drug specific antibody [Unknown]
  - Drug ineffective [Unknown]
  - Product dose omission issue [Unknown]

NARRATIVE: CASE EVENT DATE: 20200101
